FAERS Safety Report 10488653 (Version 1)
Quarter: 2014Q4

REPORT INFORMATION
  Report Type: Spontaneous
  Country: US (occurrence: None)
  Receive Date: 20141001
  Receipt Date: 20141001
  Transmission Date: 20150528
  Serious: No
  Sender: FDA-Public Use
  Company Number: None

PATIENT
  Age: 67 Year
  Sex: Female

DRUGS (1)
  1. LEVOTHYROXINE 0.088MG MYLAN [Suspect]
     Active Substance: LEVOTHYROXINE
     Indication: HYPOTHYROIDISM
     Dosage: 1  QD ORAL
     Route: 048

REACTIONS (3)
  - Abdominal pain upper [None]
  - Nausea [None]
  - Chills [None]

NARRATIVE: CASE EVENT DATE: 20140929
